FAERS Safety Report 23442973 (Version 2)
Quarter: 2024Q1

REPORT INFORMATION
  Report Type: Report from Study
  Country: CA (occurrence: CA)
  Receive Date: 20240125
  Receipt Date: 20240220
  Transmission Date: 20240410
  Serious: Yes (Other)
  Sender: FDA-Public Use
  Company Number: CA-Eisai-EC-2023-139024

PATIENT
  Age: 76 Year
  Sex: Female

DRUGS (9)
  1. LENVIMA [Suspect]
     Active Substance: LENVATINIB
     Indication: Endometrial cancer
     Route: 048
     Dates: start: 20230420, end: 20230607
  2. LENVIMA [Suspect]
     Active Substance: LENVATINIB
     Route: 048
     Dates: start: 20230608
  3. KEYTRUDA [Suspect]
     Active Substance: PEMBROLIZUMAB
     Indication: Endometrial cancer
     Route: 041
     Dates: start: 20230419, end: 202305
  4. KEYTRUDA [Suspect]
     Active Substance: PEMBROLIZUMAB
     Route: 041
     Dates: start: 20230616, end: 20230616
  5. KEYTRUDA [Suspect]
     Active Substance: PEMBROLIZUMAB
     Route: 041
  6. KEYTRUDA [Suspect]
     Active Substance: PEMBROLIZUMAB
     Route: 041
  7. KEYTRUDA [Suspect]
     Active Substance: PEMBROLIZUMAB
     Route: 041
  8. KEYTRUDA [Suspect]
     Active Substance: PEMBROLIZUMAB
     Route: 041
  9. PREDNISONE [Concomitant]
     Active Substance: PREDNISONE
     Indication: Product used for unknown indication
     Dosage: DOSE AND FREQUENCY UNKNOWN
     Route: 065

REACTIONS (24)
  - Fatigue [Recovered/Resolved]
  - Rash [Recovered/Resolved]
  - Erythema [Recovered/Resolved]
  - Pruritus [Recovered/Resolved]
  - Acne [Recovered/Resolved]
  - Dizziness [Recovered/Resolved]
  - Headache [Recovered/Resolved]
  - Arthralgia [Recovered/Resolved]
  - Dry mouth [Recovered/Resolved]
  - Pain [Recovered/Resolved]
  - Depression [Recovered/Resolved]
  - Anxiety [Recovered/Resolved]
  - Somnolence [Recovered/Resolved]
  - Dyspnoea [Recovered/Resolved]
  - Depressed mood [Recovered/Resolved]
  - Adrenal insufficiency [Recovered/Resolved]
  - Decreased appetite [Recovered/Resolved]
  - Fall [Recovered/Resolved]
  - Malaise [Recovered/Resolved]
  - Rash pruritic [Recovered/Resolved]
  - Skin disorder [Recovered/Resolved]
  - Product use issue [Recovered/Resolved]
  - Inappropriate schedule of product administration [Recovered/Resolved]
  - Nausea [Recovered/Resolved]

NARRATIVE: CASE EVENT DATE: 20230101
